FAERS Safety Report 6756240-X (Version None)
Quarter: 2010Q2

REPORT INFORMATION
  Report Type: 
  Country: None (occurrence: None)
  Receive Date: 20100604
  Receipt Date: 20100525
  Transmission Date: 20101027
  Serious: Yes (Disabling, Other)
  Sender: FDA-Public Use
  Company Number: US-WYE-H15392710

PATIENT
  Sex: Female
  Weight: 113.5 kg

DRUGS (2)
  1. PROTONIX [Suspect]
     Indication: OESOPHAGITIS
  2. PRILOSEC [Concomitant]
     Indication: BARRETT'S OESOPHAGUS
     Dosage: UNKNOWN
     Route: 048
     Dates: start: 20050101

REACTIONS (3)
  - DYSSTASIA [None]
  - INTERVERTEBRAL DISC PROTRUSION [None]
  - MUSCLE SPASMS [None]
